FAERS Safety Report 12912519 (Version 2)
Quarter: 2016Q4

REPORT INFORMATION
  Report Type: Spontaneous
  Country: CA (occurrence: CA)
  Receive Date: 20161104
  Receipt Date: 20161205
  Transmission Date: 20170207
  Serious: Yes (Other)
  Sender: FDA-Public Use
  Company Number: CA-PFIZER INC-2016489675

PATIENT
  Age: 54 Year
  Sex: Female
  Weight: 74.83 kg

DRUGS (1)
  1. BUPIVACAINE HYDROCHLORIDE/EPINEPHRINE [Suspect]
     Active Substance: BUPIVACAINE HYDROCHLORIDE\EPINEPHRINE
     Indication: LOCAL ANAESTHESIA
     Dosage: 10 CC, SINGLE
     Route: 058
     Dates: start: 20161019, end: 20161019

REACTIONS (3)
  - Palpitations [Unknown]
  - Pallor [Unknown]
  - Product quality issue [Unknown]

NARRATIVE: CASE EVENT DATE: 20161019
